FAERS Safety Report 24145192 (Version 1)
Quarter: 2024Q3

REPORT INFORMATION
  Report Type: Spontaneous
  Country: CA (occurrence: CA)
  Receive Date: 20240729
  Receipt Date: 20240729
  Transmission Date: 20241016
  Serious: Yes (Life-Threatening, Hospitalization, Other)
  Sender: BEIGENE
  Company Number: CA-BEIGENE-BGN-2024-011612

PATIENT

DRUGS (1)
  1. BRUKINSA [Suspect]
     Active Substance: ZANUBRUTINIB
     Indication: Chronic lymphocytic leukaemia
     Dosage: 160 MILLIGRAM, BID
     Route: 048

REACTIONS (6)
  - Syncope [Recovering/Resolving]
  - Intracranial haematoma [Recovering/Resolving]
  - Hyponatraemia [Recovering/Resolving]
  - Craniocerebral injury [Recovering/Resolving]
  - Inappropriate antidiuretic hormone secretion [Recovering/Resolving]
  - Nausea [Recovering/Resolving]
